FAERS Safety Report 5875747-0 (Version None)
Quarter: 2008Q3

REPORT INFORMATION
  Report Type: 
  Country: None (occurrence: None)
  Receive Date: 20080905
  Receipt Date: 20080820
  Transmission Date: 20090109
  Serious: Yes (Disabling)
  Sender: FDA-Public Use
  Company Number: 8034510

PATIENT
  Age: 35 Year
  Sex: Female

DRUGS (3)
  1. KEPPRA [Suspect]
     Indication: PETIT MAL EPILEPSY
     Dosage: 500 MG 2/D PO
     Route: 048
     Dates: start: 20080201, end: 20080601
  2. ETHOSUXIMIDE [Concomitant]
  3. METFORMIN HCL [Concomitant]

REACTIONS (1)
  - PETIT MAL EPILEPSY [None]
